FAERS Safety Report 7363117-8 (Version None)
Quarter: 2011Q1

REPORT INFORMATION
  Report Type: 
  Country: None (occurrence: None)
  Receive Date: 20110321
  Receipt Date: 20100920
  Transmission Date: 20110831
  Serious: Yes (Other)
  Sender: FDA-Public Use
  Company Number: US-BAYER-201015605NA

PATIENT
  Sex: Female
  Weight: 52 kg

DRUGS (19)
  1. PROPOFOL [Concomitant]
     Indication: ENDOSCOPIC RETROGRADE CHOLANGIOPANCREATOGRAPHY
  2. LUTERA-28 [Concomitant]
  3. YASMIN [Suspect]
     Indication: CONTRACEPTION
     Route: 048
     Dates: start: 20020901, end: 20100201
  4. HURRICAINE [Concomitant]
     Indication: DUODENAL SPHINCTEROTOMY
  5. FENTANYL [Concomitant]
     Indication: CHOLELITHIASIS
     Dosage: 100 ?G (DAILY DOSE), ,
     Dates: start: 20080317, end: 20080317
  6. ALIMENTARY TRACT AND METABOLISM [Concomitant]
  7. PEPCID [Concomitant]
  8. HURRICAINE [Concomitant]
     Indication: CHOLELITHIASIS
     Dates: start: 20080317, end: 20080317
  9. VERSED [Concomitant]
     Indication: CHOLECYSTECTOMY
     Dosage: 4 ?G (DAILY DOSE), , INTRAVENOUS
     Route: 042
     Dates: start: 20080317, end: 20080317
  10. OCELLA [Suspect]
     Indication: CONTRACEPTION
     Route: 048
     Dates: start: 20020901, end: 20100201
  11. VERSED [Concomitant]
     Indication: DUODENAL SPHINCTEROTOMY
  12. UNCODEABLE ^UNCLASSIFIABLE^ [Concomitant]
  13. HURRICAINE [Concomitant]
     Indication: ENDOSCOPIC RETROGRADE CHOLANGIOPANCREATOGRAPHY
  14. FENTANYL [Concomitant]
     Indication: DUODENAL SPHINCTEROTOMY
  15. FENTANYL [Concomitant]
     Indication: ENDOSCOPIC RETROGRADE CHOLANGIOPANCREATOGRAPHY
  16. VERSED [Concomitant]
     Indication: ENDOSCOPIC RETROGRADE CHOLANGIOPANCREATOGRAPHY
  17. PROPOFOL [Concomitant]
     Indication: DUODENAL SPHINCTEROTOMY
  18. ZANTAC [Concomitant]
  19. PROPOFOL [Concomitant]
     Indication: CHOLECYSTECTOMY
     Dosage: 10 ?G (DAILY DOSE), ,
     Dates: start: 20080317, end: 20080317

REACTIONS (13)
  - CONSTIPATION [None]
  - CHOLECYSTITIS CHRONIC [None]
  - HEPATIC ENZYME INCREASED [None]
  - GASTRITIS [None]
  - CHOLELITHIASIS [None]
  - BILE DUCT STONE [None]
  - VOMITING [None]
  - DECREASED APPETITE [None]
  - HEPATIC FUNCTION ABNORMAL [None]
  - JAUNDICE [None]
  - DYSPEPSIA [None]
  - ABDOMINAL PAIN [None]
  - ABDOMINAL PAIN UPPER [None]
